FAERS Safety Report 11298561 (Version 1)
Quarter: 2015Q3

REPORT INFORMATION
  Report Type: Spontaneous
  Country: US (occurrence: US)
  Receive Date: 20150722
  Receipt Date: 20150722
  Transmission Date: 20151125
  Serious: Yes (Other)
  Sender: FDA-Public Use
  Company Number: US-ELI_LILLY_AND_COMPANY-US201112006282

PATIENT
  Age: 50 Year
  Sex: Male
  Weight: 65 kg

DRUGS (6)
  1. EFFIENT [Suspect]
     Active Substance: PRASUGREL HYDROCHLORIDE
     Dosage: 60 MG, LOADING DOSE
  2. ASPIRIN. [Concomitant]
     Active Substance: ASPIRIN
  3. BETA BLOCKING AGENTS [Concomitant]
     Active Substance: UNSPECIFIED INGREDIENT
  4. ANGIOMAX [Concomitant]
     Active Substance: BIVALIRUDIN
  5. STATIN                             /00084401/ [Concomitant]
  6. EFFIENT [Suspect]
     Active Substance: PRASUGREL HYDROCHLORIDE
     Dosage: 10 MG, QD

REACTIONS (1)
  - Haemorrhage intracranial [Unknown]
